FAERS Safety Report 6166492-5 (Version None)
Quarter: 2009Q2

REPORT INFORMATION
  Report Type: 
  Country: None (occurrence: None)
  Receive Date: 20090422
  Receipt Date: 20090422
  Transmission Date: 20091009
  Serious: No
  Sender: FDA-Public Use
  Company Number: None

PATIENT
  Sex: Female
  Weight: 45.3597 kg

DRUGS (4)
  1. OXALIPLATIN [Suspect]
     Indication: ADJUVANT THERAPY
     Dosage: 119MG EVERY 14 DAYS IV
     Route: 042
     Dates: start: 20090101, end: 20090223
  2. OXALIPLATIN [Suspect]
     Indication: LIVER OPERATION
     Dosage: 119MG EVERY 14 DAYS IV
     Route: 042
     Dates: start: 20090101, end: 20090223
  3. OXALIPLATIN [Suspect]
  4. LEUCOVORIN CALCIUM [Concomitant]

REACTIONS (2)
  - FREQUENT BOWEL MOVEMENTS [None]
  - MALAISE [None]
